FAERS Safety Report 7173595-5 (Version None)
Quarter: 2010Q4

REPORT INFORMATION
  Report Type: 
  Country: None (occurrence: None)
  Receive Date: 20101219
  Receipt Date: 20100304
  Transmission Date: 20110411
  Serious: Yes (Hospitalization)
  Sender: FDA-Public Use
  Company Number: US-AMGEN-KDL397681

PATIENT

DRUGS (1)
  1. ENBREL [Suspect]
     Indication: RHEUMATOID ARTHRITIS
     Dosage: 25 MG, 2 TIMES/WK
     Route: 058
     Dates: start: 19990615

REACTIONS (14)
  - BREAST CANCER [None]
  - EFFUSION [None]
  - IMPAIRED HEALING [None]
  - INJECTION SITE PAIN [None]
  - INJECTION SITE URTICARIA [None]
  - LOCALISED INFECTION [None]
  - OEDEMA PERIPHERAL [None]
  - OROPHARYNGEAL PAIN [None]
  - RASH ERYTHEMATOUS [None]
  - RHEUMATOID ARTHRITIS [None]
  - SCRATCH [None]
  - SINUSITIS [None]
  - SKIN DISCOLOURATION [None]
  - VENOUS VALVE RUPTURED [None]
